FAERS Safety Report 21523361 (Version 1)
Quarter: 2022Q4

REPORT INFORMATION
  Report Type: Report from Study
  Country: US (occurrence: US)
  Receive Date: 20221029
  Receipt Date: 20221029
  Transmission Date: 20230113
  Serious: No
  Sender: FDA-Public Use
  Company Number: US-ABBVIE-22K-163-4471321-00

PATIENT
  Age: 28 Year
  Sex: Male

DRUGS (5)
  1. HUMIRA [Suspect]
     Active Substance: ADALIMUMAB
     Indication: Psoriatic arthropathy
     Dosage: CITRATE FREE
     Route: 058
  2. HUMIRA [Suspect]
     Active Substance: ADALIMUMAB
     Dosage: CITRATE FREE, DOSE REDUCED
     Route: 058
  3. MODERNA COVID-19 VACCINE [Concomitant]
     Active Substance: ELASOMERAN
     Indication: COVID-19 immunisation
     Dosage: TIME INTERVAL: TOTAL: FIRST DOSE
     Route: 030
     Dates: start: 20210409, end: 20210409
  4. MODERNA COVID-19 VACCINE [Concomitant]
     Active Substance: ELASOMERAN
     Indication: COVID-19 immunisation
     Dosage: TIME INTERVAL: TOTAL: SECOND DOSE
     Route: 030
     Dates: start: 20210507, end: 20210507
  5. MODERNA COVID-19 VACCINE [Concomitant]
     Active Substance: ELASOMERAN
     Indication: COVID-19 immunisation
     Dosage: TIME INTERVAL: TOTAL: BOOSTER DOSE
     Route: 030
     Dates: start: 20211222, end: 20211222

REACTIONS (5)
  - Eye disorder [Recovering/Resolving]
  - Ocular hyperaemia [Unknown]
  - Inflammation [Unknown]
  - Psoriatic arthropathy [Recovered/Resolved]
  - Pain [Unknown]

NARRATIVE: CASE EVENT DATE: 20220701
